FAERS Safety Report 4303189-8 (Version None)
Quarter: 2004Q1

REPORT INFORMATION
  Report Type: 
  Country: None (occurrence: None)
  Receive Date: 20040223
  Receipt Date: 20040209
  Transmission Date: 20041129
  Serious: Yes (Hospitalization)
  Sender: FDA-Public Use
  Company Number: 2003-BP-10772BP

PATIENT
  Age: 95 Year
  Sex: Female

DRUGS (10)
  1. CATAPRES [Suspect]
     Indication: HYPERTENSION
     Dosage: 0.2 MG (5 MG, 1 PATCH Q WEEK), PO
     Route: 048
     Dates: start: 20030101
  2. LASIX [Concomitant]
  3. PLAVIX [Concomitant]
  4. LOPRESSOR [Concomitant]
  5. ACETYLSALICYLIC ACID SRT [Concomitant]
  6. CARDIZEM [Concomitant]
  7. SYNTHROID [Concomitant]
  8. VICODIN [Concomitant]
  9. DILANTIN [Concomitant]
  10. NORVASC [Concomitant]

REACTIONS (4)
  - CEREBROVASCULAR ACCIDENT [None]
  - CONVULSION [None]
  - HYPERTENSION [None]
  - OEDEMA PERIPHERAL [None]
